FAERS Safety Report 21264772 (Version 1)
Quarter: 2022Q3

REPORT INFORMATION
  Report Type: Spontaneous
  Country: US (occurrence: None)
  Receive Date: 20220827
  Receipt Date: 20220827
  Transmission Date: 20221026
  Serious: Yes (Life-Threatening, Hospitalization, Other)
  Sender: FDA-Public Use
  Company Number: None

PATIENT
  Age: 66 Year
  Sex: Male

DRUGS (2)
  1. PREDNISONE [Suspect]
     Active Substance: PREDNISONE
     Indication: Inflammation
     Dosage: FREQUENCY : TWICE A DAY;?
     Route: 048
     Dates: start: 20220502, end: 20220616
  2. PREDNISONE [Suspect]
     Active Substance: PREDNISONE
     Indication: Premedication

REACTIONS (1)
  - Duodenal ulcer haemorrhage [None]

NARRATIVE: CASE EVENT DATE: 20220502
